FAERS Safety Report 7271913-0 (Version None)
Quarter: 2011Q1

REPORT INFORMATION
  Report Type: 
  Country: None (occurrence: None)
  Receive Date: 20110203
  Receipt Date: 20110131
  Transmission Date: 20110831
  Serious: Yes (Hospitalization)
  Sender: FDA-Public Use
  Company Number: JP-PFIZER INC-2008088262

PATIENT
  Age: 14 Year
  Sex: Female
  Weight: 66 kg

DRUGS (6)
  1. MYSTAN [Concomitant]
     Indication: EPILEPSY
     Route: 048
  2. EXCEGRAN [Concomitant]
     Indication: EPILEPSY
     Route: 048
  3. SELENICA-R [Concomitant]
     Indication: EPILEPSY
     Route: 048
     Dates: start: 19960110
  4. DIAMOX [Concomitant]
     Indication: EPILEPSY
     Dosage: 250 MG, 2X/DAY
     Route: 048
  5. EPILEO PETIT MAL [Concomitant]
     Indication: EPILEPSY
     Route: 048
  6. GABAPENTIN [Suspect]
     Indication: EPILEPSY
     Dosage: 200 MG, 2X/DAY
     Dates: start: 20080808, end: 20080831

REACTIONS (1)
  - EPILEPSY [None]
